FAERS Safety Report 26187616 (Version 1)
Quarter: 2025Q4

REPORT INFORMATION
  Report Type: Spontaneous
  Country: US (occurrence: US)
  Receive Date: 20251222
  Receipt Date: 20251222
  Transmission Date: 20260118
  Serious: No
  Sender: DR REDDYS
  Company Number: US-DRL-USA-USA/2025/12/019006

PATIENT
  Age: 52 Year
  Sex: Male

DRUGS (4)
  1. DOCETAXEL [Suspect]
     Active Substance: DOCETAXEL
     Indication: Glomus tumour
     Dosage: 8 CYCLES EVERY 21 DAYS
  2. DOCETAXEL [Suspect]
     Active Substance: DOCETAXEL
     Indication: Gastric cancer
  3. GEMCITABINE [Suspect]
     Active Substance: GEMCITABINE
     Indication: Glomus tumour
     Dosage: 8 CYCLES EVERY 21 DAYS
  4. GEMCITABINE [Suspect]
     Active Substance: GEMCITABINE
     Indication: Gastric cancer

REACTIONS (3)
  - Drug intolerance [Unknown]
  - Product use in unapproved indication [Unknown]
  - Adverse drug reaction [Unknown]
